FAERS Safety Report 7093851-9 (Version None)
Quarter: 2010Q4

REPORT INFORMATION
  Report Type: 
  Country: None (occurrence: None)
  Receive Date: 20101110
  Receipt Date: 20101104
  Transmission Date: 20110411
  Serious: Yes (Hospitalization)
  Sender: FDA-Public Use
  Company Number: A0890903A

PATIENT
  Age: 86 Year
  Sex: Female

DRUGS (14)
  1. ADVAIR DISKUS 100/50 [Suspect]
     Route: 055
  2. SIMVASTATIN [Concomitant]
  3. CALCIUM [Concomitant]
  4. SYNTHROID [Concomitant]
  5. LASIX [Concomitant]
  6. AMBIEN [Concomitant]
  7. ALPRAZOLAM [Concomitant]
  8. CARTIA XT [Concomitant]
  9. LISINOPRIL [Concomitant]
  10. PROVENTIL [Concomitant]
  11. DUONEB [Concomitant]
  12. PLAVIX [Concomitant]
  13. ANTIVERT [Concomitant]
  14. VICODIN [Concomitant]

REACTIONS (1)
  - CEREBROVASCULAR ACCIDENT [None]
